FAERS Safety Report 7802143-9 (Version None)
Quarter: 2011Q4

REPORT INFORMATION
  Report Type: 
  Country: None (occurrence: None)
  Receive Date: 20111007
  Receipt Date: 20111004
  Transmission Date: 20120403
  Serious: Yes (Other)
  Sender: FDA-Public Use
  Company Number: US-AMGEN-USASP2011026316

PATIENT
  Age: 54 Year
  Sex: Female
  Weight: 79.365 kg

DRUGS (19)
  1. GLUCOPHAGE [Concomitant]
     Dosage: 500 MG, UNK
  2. FISH OIL [Concomitant]
     Dosage: 1000 MG, UNK
  3. HAEMOPHILUS INFLUENZAE VACCINE [Concomitant]
  4. PNEUMOCOCCAL VACCINE [Concomitant]
  5. FERROUS SULFATE TAB [Concomitant]
     Dosage: 325 MG, UNK
  6. PHENAZOPYRIDINE HCL TAB [Concomitant]
     Dosage: 200 MG, UNK
  7. VITAMIN D [Concomitant]
     Dosage: 1000 UNIT, UNK
  8. PAMELOR [Concomitant]
     Dosage: 50 MG, UNK
  9. MACROBID [Concomitant]
     Dosage: 100 MG, UNK
  10. CORTICOSTEROIDS [Concomitant]
     Indication: IDIOPATHIC THROMBOCYTOPENIC PURPURA
  11. MENINGOCOCCAL VACCINE [Concomitant]
  12. EFFEXOR XR [Concomitant]
     Dosage: 150 MG, UNK
  13. COREG [Concomitant]
     Dosage: 12.5 MG, UNK
  14. NORCO [Concomitant]
  15. ZOCOR [Concomitant]
     Dosage: 40 MG, UNK
  16. NPLATE [Suspect]
     Indication: IDIOPATHIC THROMBOCYTOPENIC PURPURA
     Dosage: 230 MUG, UNK
     Dates: start: 20101021, end: 20110401
  17. NEURONTIN [Concomitant]
     Dosage: 300 MG, UNK
  18. CYANOCOBALAMIN [Concomitant]
  19. PRILOSEC [Concomitant]
     Dosage: 20 MG, UNK

REACTIONS (3)
  - THERAPEUTIC RESPONSE DECREASED [None]
  - PLATELET COUNT INCREASED [None]
  - THROMBOCYTOPENIA [None]
